FAERS Safety Report 7138069-6 (Version None)
Quarter: 2010Q4

REPORT INFORMATION
  Report Type: 
  Country: None (occurrence: None)
  Receive Date: 20101109
  Receipt Date: 20090623
  Transmission Date: 20110411
  Serious: No
  Sender: FDA-Public Use
  Company Number: 2009-00182

PATIENT
  Age: 61 Year
  Sex: Female
  Weight: 90.7194 kg

DRUGS (3)
  1. ZICAM COLD REMEDY NASAL GEL [Suspect]
     Dosage: QID X DAY, 2004 1 1/2 YEARS AGO
  2. PROCARDIA [Concomitant]
  3. ADALAT [Concomitant]

REACTIONS (3)
  - ANOSMIA [None]
  - BURNING SENSATION [None]
  - PAIN [None]
